FAERS Safety Report 12309913 (Version 4)
Quarter: 2016Q2

REPORT INFORMATION
  Report Type: Report from Study
  Country: CA (occurrence: CA)
  Receive Date: 20160427
  Receipt Date: 20160509
  Transmission Date: 20160815
  Serious: Yes (Death, Hospitalization, Other)
  Sender: FDA-Public Use
  Company Number: CA-GLAXOSMITHKLINE-CA2016GSK058234

PATIENT
  Sex: Female
  Weight: 80 kg

DRUGS (10)
  1. RITUXIMAB [Concomitant]
     Active Substance: RITUXIMAB
     Dosage: 1000 MG, UNK
     Dates: start: 20080222, end: 20080307
  2. CORTICOSTEROIDS NOS [Concomitant]
     Active Substance: UNSPECIFIED INGREDIENT
     Dosage: UNK
     Dates: start: 19930915, end: 20140926
  3. ANTIMALARIALS (NOS) [Concomitant]
     Active Substance: UNSPECIFIED INGREDIENT
     Dosage: 400 MG, UNK
     Dates: start: 19931027, end: 20061220
  4. AZATHIOPRINE. [Concomitant]
     Active Substance: AZATHIOPRINE
     Dosage: 125 MG, QD
     Dates: start: 20030416, end: 20030917
  5. CYCLOPHOSPHAMIDE. [Concomitant]
     Active Substance: CYCLOPHOSPHAMIDE
     Dosage: 1000 MG/M2, UNK
     Dates: start: 20060316, end: 20060817
  6. CELEXA [Concomitant]
     Active Substance: CITALOPRAM HYDROBROMIDE
     Dosage: 20 MG, UNK
     Route: 048
  7. BELIMUMAB [Suspect]
     Active Substance: BELIMUMAB
     Indication: SYSTEMIC LUPUS ERYTHEMATOSUS
     Dosage: 10 MG/KG, UNK
     Dates: start: 20120112, end: 20160401
  8. ANTIMALARIALS (NOS) [Concomitant]
     Active Substance: UNSPECIFIED INGREDIENT
     Dosage: 200 MG, QD
     Dates: start: 198001, end: 19830201
  9. MYCOPHENOLATE MOFETIL. [Concomitant]
     Active Substance: MYCOPHENOLATE MOFETIL
     Dosage: 1000 MG, BID
     Dates: start: 20030918, end: 20060308
  10. CELEXA [Concomitant]
     Active Substance: CITALOPRAM HYDROBROMIDE
     Dosage: 10 MG, QD
     Route: 048
     Dates: start: 20160218

REACTIONS (1)
  - Urosepsis [Fatal]

NARRATIVE: CASE EVENT DATE: 20160411
